FAERS Safety Report 4425841-6 (Version None)
Quarter: 2004Q3

REPORT INFORMATION
  Report Type: 
  Country: None (occurrence: None)
  Receive Date: 20040810
  Receipt Date: 20040728
  Transmission Date: 20050211
  Serious: Yes (Hospitalization)
  Sender: FDA-Public Use
  Company Number: 032-0981-M0000025

PATIENT
  Age: 73 Year
  Sex: Male
  Weight: 81 kg

DRUGS (5)
  1. ATORVASTATIN CALCIUM [Suspect]
     Indication: CORONARY ARTERY DISEASE
     Dosage: 10 MG (DAILY), ORAL;  10 OR 80 MG (DAILY), ORAL
     Route: 048
     Dates: start: 19980807, end: 19981001
  2. ATORVASTATIN CALCIUM [Suspect]
     Indication: CORONARY ARTERY DISEASE
     Dosage: 10 MG (DAILY), ORAL;  10 OR 80 MG (DAILY), ORAL
     Route: 048
     Dates: start: 19981002
  3. ASPIRIN [Concomitant]
  4. BETAHISTINE HYDROCHLORIDE (BETAHISTINE HYDROCHLORIDE) [Concomitant]
  5. CLOTIAZEPAM (CLOTIAZEPAM) [Concomitant]

REACTIONS (3)
  - BRONCHITIS [None]
  - LUNG DISORDER [None]
  - PULMONARY EMBOLISM [None]
